FAERS Safety Report 18014720 (Version 1)
Quarter: 2020Q3

REPORT INFORMATION
  Report Type: Spontaneous
  Country: US (occurrence: US)
  Receive Date: 20200713
  Receipt Date: 20200713
  Transmission Date: 20201103
  Serious: No
  Sender: FDA-Public Use
  Company Number: US-BAUSCH-BL-2020-018213

PATIENT
  Age: 59 Year
  Sex: Female

DRUGS (1)
  1. ZOVIRAX [Suspect]
     Active Substance: ACYCLOVIR
     Indication: ORAL HERPES
     Dosage: APPROXIMATELY 6 YEARS AGO, USED AS NEEDED?PRESCRIBED ONE TUBE AT A TIME
     Route: 065
     Dates: start: 1990, end: 2014

REACTIONS (5)
  - Therapy interrupted [Unknown]
  - Pain [Not Recovered/Not Resolved]
  - Insurance issue [Unknown]
  - Inability to afford medication [Unknown]
  - Product size issue [Unknown]

NARRATIVE: CASE EVENT DATE: 2014
